FAERS Safety Report 8729797 (Version 2)
Quarter: 2012Q4

REPORT INFORMATION
  Report Type: 
  Country: GB (occurrence: GB)
  Receive Date: 20120817
  Receipt Date: 20120913
  Transmission Date: 20130627
  Serious: Yes (Other)
  Sender: FDA-Public Use
  Company Number: GB-WATSON-2012-14454

PATIENT
  Age: 38 Year
  Sex: Male

DRUGS (3)
  1. CITALOPRAM HYDROBROMIDE (UNKNOWN) [Suspect]
     Indication: ANXIETY
     Dosage: 80 mg, daily
     Route: 048
     Dates: end: 201204
  2. CITALOPRAM HYDROBROMIDE (UNKNOWN) [Suspect]
     Dosage: 60 mg, daily
     Route: 048
     Dates: end: 201204
  3. SSRI [Concomitant]
     Indication: ANXIETY
     Route: 065

REACTIONS (7)
  - Suicidal ideation [Not Recovered/Not Resolved]
  - Anxiety [Not Recovered/Not Resolved]
  - Activities of daily living impaired [Not Recovered/Not Resolved]
  - Withdrawal syndrome [Not Recovered/Not Resolved]
  - Prescribed overdose [Recovered/Resolved]
  - Off label use [Recovered/Resolved]
  - Mental impairment [Not Recovered/Not Resolved]
